FAERS Safety Report 17311714 (Version 1)
Quarter: 2020Q1

REPORT INFORMATION
  Report Type: Spontaneous
  Country: US (occurrence: US)
  Receive Date: 20200123
  Receipt Date: 20200123
  Transmission Date: 20200409
  Serious: Yes (Hospitalization)
  Sender: FDA-Public Use
  Company Number: US-ROCHE-2460445

PATIENT
  Age: 63 Year
  Sex: Female
  Weight: 80.7 kg

DRUGS (2)
  1. RITUXAN [Suspect]
     Active Substance: RITUXIMAB
     Indication: DIFFUSE LARGE B-CELL LYMPHOMA
     Dosage: ONGOING: UNKNOWN
     Route: 042
     Dates: start: 20191003
  2. RITUXAN [Suspect]
     Active Substance: RITUXIMAB
     Dosage: ONGOING: UNKNOWN
     Route: 042
     Dates: start: 20191030

REACTIONS (8)
  - Lip swelling [Unknown]
  - Burning sensation [Unknown]
  - Blood albumin abnormal [Unknown]
  - Rash [Recovering/Resolving]
  - Dermatitis bullous [Recovering/Resolving]
  - Rash [Recovered/Resolved]
  - Rash [Recovering/Resolving]
  - Hypoaesthesia [Unknown]

NARRATIVE: CASE EVENT DATE: 20191003
